FAERS Safety Report 14523439 (Version 2)
Quarter: 2019Q2

REPORT INFORMATION
  Report Type: Not Available
  Country: US (occurrence: US)
  Receive Date: 20180212
  Receipt Date: 20190604
  Transmission Date: 20190711
  Serious: Yes (Hospitalization)
  Sender: FDA-Public Use
  Company Number: US-NEUROCRINE BIOSCIENCES INC.-2018NBI00377

PATIENT
  Sex: Female

DRUGS (1)
  1. INGREZZA [Suspect]
     Active Substance: VALBENAZINE
     Indication: TARDIVE DYSKINESIA

REACTIONS (1)
  - Anaphylactic reaction [Recovered/Resolved]
